FAERS Safety Report 14669444 (Version 1)
Quarter: 2018Q1

REPORT INFORMATION
  Report Type: Spontaneous
  Country: US (occurrence: US)
  Receive Date: 20180321
  Receipt Date: 20180321
  Transmission Date: 20180509
  Serious: Yes (Death)
  Sender: FDA-Public Use
  Company Number: None

PATIENT
  Age: 65 Year
  Sex: Female

DRUGS (11)
  1. LORAZEPAM. [Concomitant]
     Active Substance: LORAZEPAM
  2. ONDANETRON [Concomitant]
  3. IBRANCE [Suspect]
     Active Substance: PALBOCICLIB
     Indication: BREAST CANCER
     Route: 048
     Dates: start: 20151123
  4. OXYCODONE [Concomitant]
     Active Substance: OXYCODONE
  5. HYOSCAMINE [Concomitant]
  6. MORPHINE [Concomitant]
     Active Substance: MORPHINE
  7. PROCHLORPER [Concomitant]
  8. BISAC-EVAC [Concomitant]
     Active Substance: BISACODYL
  9. ACEPHEN [Concomitant]
     Active Substance: ACETAMINOPHEN
  10. LETROZOLE. [Concomitant]
     Active Substance: LETROZOLE
  11. CALCIFEROL [Concomitant]
     Active Substance: ERGOCALCIFEROL

REACTIONS (1)
  - Death [None]
